FAERS Safety Report 4352490-0 (Version None)
Quarter: 2004Q2

REPORT INFORMATION
  Report Type: 
  Country: None (occurrence: None)
  Receive Date: 20040428
  Receipt Date: 20040414
  Transmission Date: 20050107
  Serious: Yes (Hospitalization)
  Sender: FDA-Public Use
  Company Number: 2004AP00503

PATIENT
  Age: 57 Year
  Sex: Male

DRUGS (18)
  1. IRESSA [Suspect]
     Indication: ADENOCARCINOMA
     Dosage: 250 MG DAILY PO
     Route: 048
     Dates: start: 20031201, end: 20040107
  2. IRESSA [Suspect]
     Indication: NON-SMALL CELL LUNG CANCER
     Dosage: 250 MG DAILY PO
     Route: 048
     Dates: start: 20031201, end: 20040107
  3. LASIX [Concomitant]
  4. MUCOSTA          /SWE/ [Concomitant]
  5. BERIZYM [Concomitant]
  6. MUCODYNE [Concomitant]
  7. DIPYRIDAMOLE [Concomitant]
  8. MYSLEE [Concomitant]
  9. PL GRAN. [Concomitant]
  10. TRANSAMIN [Concomitant]
  11. DEPAS [Concomitant]
  12. MIYA-BM [Concomitant]
  13. CRAVIT [Concomitant]
  14. ALBUMIN TANNATE [Concomitant]
  15. CARBOPLATIN [Concomitant]
  16. PACLITAXEL [Concomitant]
  17. CISPLATIN [Concomitant]
  18. GEMCITABINE [Concomitant]

REACTIONS (9)
  - ALANINE AMINOTRANSFERASE INCREASED [None]
  - ANXIETY [None]
  - ASPARTATE AMINOTRANSFERASE INCREASED [None]
  - CARDIAC FAILURE [None]
  - DIARRHOEA [None]
  - GAMMA-GLUTAMYLTRANSFERASE INCREASED [None]
  - HEPATIC FUNCTION ABNORMAL [None]
  - PLEURAL EFFUSION [None]
  - PULMONARY OEDEMA [None]
